FAERS Safety Report 10485563 (Version 1)
Quarter: 2014Q3

REPORT INFORMATION
  Report Type: Spontaneous
  Country: US (occurrence: US)
  Receive Date: 20140930
  Receipt Date: 20140930
  Transmission Date: 20150326
  Serious: No
  Sender: FDA-Public Use
  Company Number: US-ASTRAZENECA-2014SE69359

PATIENT
  Age: 58 Year
  Sex: Female
  Weight: 68 kg

DRUGS (4)
  1. TENORMIN [Suspect]
     Active Substance: ATENOLOL
     Indication: HYPERTENSION
     Dosage: ATENOLOL, 25 MG- AM 12.5 MG HS DAILY (TWICE DAILY INCLUDING HALF TABLET IN THE EVENING)
     Route: 048
     Dates: start: 1994
  2. DRUG NAME BEGINS WITH H [Concomitant]
     Indication: DIURETIC THERAPY
     Route: 048
     Dates: start: 2011
  3. TENORMIN [Suspect]
     Active Substance: ATENOLOL
     Indication: HYPERTENSION
     Dosage: 25 MG-AM 12.5MGHS DAILY (TWICE DAILY INCLUDING HALF TABLET IN THE EVENING)
     Route: 048
     Dates: start: 20140915
  4. UNSPECIFIED GENERIC [Concomitant]
     Active Substance: UNSPECIFIED INGREDIENT
     Indication: BLOOD PRESSURE ABNORMAL

REACTIONS (6)
  - Typical aura without headache [Recovered/Resolved]
  - Off label use [Unknown]
  - Expired product administered [Unknown]
  - Nausea [Recovered/Resolved]
  - Dizziness [Recovered/Resolved]
  - Heart rate decreased [Recovered/Resolved]

NARRATIVE: CASE EVENT DATE: 1994
